FAERS Safety Report 7831766-6 (Version None)
Quarter: 2011Q4

REPORT INFORMATION
  Report Type: 
  Country: None (occurrence: None)
  Receive Date: 20111021
  Receipt Date: 20111010
  Transmission Date: 20120403
  Serious: Yes (Hospitalization)
  Sender: FDA-Public Use
  Company Number: US-ELI_LILLY_AND_COMPANY-US200811000675

PATIENT
  Sex: Female

DRUGS (7)
  1. LESCOL [Concomitant]
     Indication: HYPERLIPIDAEMIA
  2. LEXAPRO [Concomitant]
     Indication: DEPRESSION
  3. CARTIA XT [Concomitant]
  4. PREMARIN [Concomitant]
     Indication: MENOPAUSE
  5. LEVOXYL [Concomitant]
     Indication: HYPOTHYROIDISM
  6. SOMATROPIN [Suspect]
     Indication: HYPOPITUITARISM
     Dosage: 0.43 IU, DAILY (1/D)
  7. ALPRAZOLAM [Concomitant]
     Indication: ANXIETY

REACTIONS (1)
  - DIZZINESS [None]
